FAERS Safety Report 5928018-8 (Version None)
Quarter: 2008Q4

REPORT INFORMATION
  Report Type: 
  Country: None (occurrence: None)
  Receive Date: 20081023
  Receipt Date: 20080922
  Transmission Date: 20090506
  Serious: No
  Sender: FDA-Public Use
  Company Number: US-BAYER-200834108NA

PATIENT
  Age: 57 Year
  Sex: Female
  Weight: 87 kg

DRUGS (7)
  1. ULTRAVIST 370 [Suspect]
     Indication: COMPUTERISED TOMOGRAM ABDOMEN
     Dosage: TOTAL DAILY DOSE: 120 ML  UNIT DOSE: 500 ML
     Route: 042
     Dates: start: 20080922, end: 20080922
  2. TRICOR [Concomitant]
  3. METFORMIN [Concomitant]
  4. DEMEDEX [Concomitant]
  5. AVALIDE [Concomitant]
  6. LOPRESSOR [Concomitant]
  7. CONTRAST MEDIA [Concomitant]
     Indication: COMPUTERISED TOMOGRAM ABDOMEN
     Route: 048
     Dates: start: 20080922, end: 20080922

REACTIONS (2)
  - PRURITUS [None]
  - URTICARIA [None]
